FAERS Safety Report 4951884-X (Version None)
Quarter: 2006Q1

REPORT INFORMATION
  Report Type: 
  Country: None (occurrence: None)
  Receive Date: 20060323
  Receipt Date: 20060313
  Transmission Date: 20060701
  Serious: Yes (Hospitalization)
  Sender: FDA-Public Use
  Company Number: JP-KINGPHARMUSA00001-K200600346

PATIENT
  Age: 50 Year
  Sex: Male

DRUGS (2)
  1. METHIMAZOLE TABLETS, USP [Suspect]
     Indication: BASEDOW'S DISEASE
     Dosage: 30 MG, TID
     Dates: start: 20030901, end: 20031101
  2. METHIMAZOLE TABLETS, USP [Suspect]
     Dosage: 30 MG, TID
     Dates: start: 20031101, end: 20031201

REACTIONS (12)
  - C-REACTIVE PROTEIN INCREASED [None]
  - CYTOMEGALOVIRUS INFECTION [None]
  - DERMATITIS EXFOLIATIVE [None]
  - DRUG HYPERSENSITIVITY [None]
  - HEPATIC FUNCTION ABNORMAL [None]
  - HERPES VIRUS INFECTION [None]
  - LUNG INFILTRATION [None]
  - PNEUMONIA PNEUMOCOCCAL [None]
  - PYREXIA [None]
  - RED BLOOD CELL COUNT DECREASED [None]
  - STREPTOCOCCAL SEPSIS [None]
  - WHITE BLOOD CELL COUNT INCREASED [None]
